FAERS Safety Report 6304060-2 (Version None)
Quarter: 2009Q3

REPORT INFORMATION
  Report Type: 
  Country: None (occurrence: None)
  Receive Date: 20090810
  Receipt Date: 20090729
  Transmission Date: 20100115
  Serious: Yes (Other)
  Sender: FDA-Public Use
  Company Number: JP-PFIZER INC-2009248680

PATIENT

DRUGS (2)
  1. HYDROCORTISONE AND HYDROCORTISONE ACETATE AND HYDROCORTISONE CIPIONATE [Suspect]
     Indication: SHOCK
  2. EPINEPHRINE [Concomitant]

REACTIONS (3)
  - ATRIAL THROMBOSIS [None]
  - PERIVENTRICULAR LEUKOMALACIA [None]
  - QUADRIPLEGIA [None]
